FAERS Safety Report 9051928 (Version 2)
Quarter: 2013Q1

REPORT INFORMATION
  Report Type: Spontaneous
  Country: DE (occurrence: DE)
  Receive Date: 20130207
  Receipt Date: 20130222
  Transmission Date: 20140127
  Serious: Yes (Other)
  Sender: FDA-Public Use
  Company Number: DE-JNJFOC-20130201803

PATIENT
  Age: 41 None
  Sex: Female
  Weight: 80 kg

DRUGS (9)
  1. XARELTO [Suspect]
     Indication: EMBOLISM VENOUS
     Route: 048
     Dates: start: 20121112, end: 20121204
  2. XARELTO [Suspect]
     Indication: EMBOLISM VENOUS
     Route: 048
     Dates: start: 20121029, end: 20121111
  3. XARELTO [Suspect]
     Indication: DEEP VEIN THROMBOSIS
     Route: 048
     Dates: start: 20121112, end: 20121204
  4. XARELTO [Suspect]
     Indication: DEEP VEIN THROMBOSIS
     Route: 048
     Dates: start: 20121029, end: 20121111
  5. CITALOPRAM [Concomitant]
     Indication: PANIC ATTACK
     Route: 048
  6. CITALOPRAM [Concomitant]
     Indication: ANXIETY
     Route: 048
  7. ALPRAZOLAM [Concomitant]
     Indication: PANIC ATTACK
     Route: 048
  8. ALPRAZOLAM [Concomitant]
     Indication: ANXIETY
     Route: 048
  9. ACETYLSALICYLIC ACID W/CAFFEINE/CODEINE [Concomitant]
     Route: 065

REACTIONS (13)
  - Menorrhagia [Recovered/Resolved]
  - Cardiovascular disorder [Recovered/Resolved]
  - Pain of skin [Recovered/Resolved]
  - Malaise [Recovered/Resolved]
  - Palpitations [Recovered/Resolved]
  - Arthralgia [Unknown]
  - Pain in extremity [Unknown]
  - Pruritus [Unknown]
  - Constipation [Unknown]
  - Anxiety [Unknown]
  - Skin disorder [Unknown]
  - Muscular weakness [Unknown]
  - Malaise [Unknown]
